FAERS Safety Report 21523232 (Version 1)
Quarter: 2022Q4

REPORT INFORMATION
  Report Type: Spontaneous
  Country: US (occurrence: US)
  Receive Date: 20221029
  Receipt Date: 20221029
  Transmission Date: 20230113
  Serious: No
  Sender: FDA-Public Use
  Company Number: US-BRISTOL-MYERS SQUIBB COMPANY-2022-128946

PATIENT
  Age: 88 Year
  Sex: Male

DRUGS (1)
  1. ELIQUIS [Suspect]
     Active Substance: APIXABAN
     Indication: Hypertension
     Dosage: DOSE : 5  MG;     FREQ : DAILY
     Route: 048

REACTIONS (2)
  - Heart rate increased [Recovered/Resolved]
  - Off label use [Unknown]
